FAERS Safety Report 6068631-3 (Version None)
Quarter: 2009Q1

REPORT INFORMATION
  Report Type: 
  Country: None (occurrence: None)
  Receive Date: 20090203
  Receipt Date: 20090119
  Transmission Date: 20090719
  Serious: Yes (Hospitalization)
  Sender: FDA-Public Use
  Company Number: 2009153825

PATIENT
  Age: 72 Year
  Sex: Male

DRUGS (3)
  1. FRAGMIN [Suspect]
     Indication: DEEP VEIN THROMBOSIS
     Dosage: 5000 IU, 1X/DAY
     Dates: start: 20081117, end: 20081126
  2. FRAGMIN [Suspect]
     Indication: THROMBOSIS PROPHYLAXIS
     Dosage: 5000 IU, 1X/DAY
     Dates: start: 20081117, end: 20081126
  3. ARIXTRA [Concomitant]

REACTIONS (3)
  - BRONCHOPNEUMONIA [None]
  - MOBILITY DECREASED [None]
  - PLATELET COUNT DECREASED [None]
